FAERS Safety Report 10453166 (Version 1)
Quarter: 2014Q3

REPORT INFORMATION
  Report Type: Spontaneous
  Country: DK (occurrence: DK)
  Receive Date: 20140915
  Receipt Date: 20140915
  Transmission Date: 20150326
  Serious: Yes (Disabling)
  Sender: FDA-Public Use
  Company Number: DK-GLAXOSMITHKLINE-B1031839A

PATIENT
  Sex: Male

DRUGS (1)
  1. NELARABINE [Suspect]
     Active Substance: NELARABINE
     Indication: T-CELL TYPE ACUTE LEUKAEMIA
     Dates: start: 20130930, end: 20131004

REACTIONS (9)
  - Paresis [Unknown]
  - Guillain-Barre syndrome [Unknown]
  - Leukaemia [Unknown]
  - Muscular weakness [Unknown]
  - Pyrexia [Unknown]
  - Motor dysfunction [Unknown]
  - Dysuria [Unknown]
  - Pain in extremity [Unknown]
  - Respiratory disorder [Unknown]

NARRATIVE: CASE EVENT DATE: 20131121
